FAERS Safety Report 5261883-9 (Version None)
Quarter: 2007Q1

REPORT INFORMATION
  Report Type: 
  Country: None (occurrence: None)
  Receive Date: 20070310
  Receipt Date: 20070228
  Transmission Date: 20070707
  Serious: No
  Sender: FDA-Public Use
  Company Number: 2006UW08089

PATIENT
  Age: 677 Month
  Sex: Female
  Weight: 52.3 kg

DRUGS (3)
  1. SEROQUEL [Suspect]
     Indication: BIPOLAR DISORDER
     Route: 048
     Dates: start: 20010101, end: 20040520
  2. SEROQUEL [Suspect]
     Indication: INSOMNIA
     Route: 048
     Dates: start: 20010101, end: 20040520
  3. ABILIFY [Concomitant]

REACTIONS (1)
  - DIABETES MELLITUS [None]
